FAERS Safety Report 5064505-5 (Version None)
Quarter: 2006Q3

REPORT INFORMATION
  Report Type: 
  Country: None (occurrence: None)
  Receive Date: 20060728
  Receipt Date: 20060717
  Transmission Date: 20061208
  Serious: Yes (Other)
  Sender: FDA-Public Use
  Company Number: PHFR2006GB02252

PATIENT
  Sex: Female

DRUGS (1)
  1. GLEEVEC [Suspect]
     Dosage: FOETAL DRUG EXPOSURE VIA FATHER

REACTIONS (3)
  - ABORTION SPONTANEOUS [None]
  - BLOOD FOLATE DECREASED [None]
  - TRANSMISSION OF DRUG VIA SEMEN [None]
